FAERS Safety Report 14251593 (Version 2)
Quarter: 2017Q4

REPORT INFORMATION
  Report Type: Spontaneous
  Country: JP (occurrence: JP)
  Receive Date: 20171205
  Receipt Date: 20171212
  Transmission Date: 20180321
  Serious: Yes (Other)
  Sender: FDA-Public Use
  Company Number: PHJP2017JP035295

PATIENT
  Sex: Female

DRUGS (2)
  1. EXELON PATCH [Suspect]
     Active Substance: RIVASTIGMINE
     Indication: DEMENTIA ALZHEIMER^S TYPE
     Dosage: 1.9 MG, QD, (PATCH 2.5 (CM2), WITH 4.5 MG RIVASTIGMINE BASE)
     Route: 062
     Dates: start: 201709
  2. EXELON PATCH [Suspect]
     Active Substance: RIVASTIGMINE
     Dosage: 4.6 MG, QD, (PATCH5 (CM2), WITH 9 MG RIVASTIGMINE BASE)
     Route: 062
     Dates: start: 201710, end: 201711

REACTIONS (3)
  - Somnolence [Unknown]
  - Dementia [Recovered/Resolved]
  - Apathy [Unknown]

NARRATIVE: CASE EVENT DATE: 201711
